FAERS Safety Report 25299712 (Version 1)
Quarter: 2025Q2

REPORT INFORMATION
  Report Type: Spontaneous
  Country: US (occurrence: None)
  Receive Date: 20250509
  Receipt Date: 20250509
  Transmission Date: 20250717
  Serious: No
  Sender: FDA-CTU
  Company Number: None

PATIENT
  Sex: Male

DRUGS (3)
  1. ABACAVIR [Suspect]
     Active Substance: ABACAVIR
     Indication: HIV infection
     Dosage: 600 UG MICROGRAM(S) DAILY ORAL
     Route: 048
     Dates: start: 20221101
  2. EFAVIRENZ [Concomitant]
     Active Substance: EFAVIRENZ
  3. LAMIVUDINE [Concomitant]
     Active Substance: LAMIVUDINE
     Dates: start: 20221101

REACTIONS (1)
  - Hospitalisation [None]
